FAERS Safety Report 18912637 (Version 1)
Quarter: 2021Q1

REPORT INFORMATION
  Report Type: Spontaneous
  Country: US (occurrence: US)
  Receive Date: 20210218
  Receipt Date: 20210218
  Transmission Date: 20210420
  Serious: No
  Sender: FDA-Public Use
  Company Number: US-TEVA-2021-US-1880180

PATIENT
  Sex: Female

DRUGS (2)
  1. LIDOCAINE W/PRILOCAINE [Suspect]
     Active Substance: LIDOCAINE\PRILOCAINE
     Indication: BREAST PAIN
     Dosage: ONCE DAILY UP TO 1 GM A DAY
     Route: 061
     Dates: start: 20210106
  2. LIDOCAINE W/PRILOCAINE [Suspect]
     Active Substance: LIDOCAINE\PRILOCAINE
     Indication: LOCAL ANAESTHESIA

REACTIONS (1)
  - Drug ineffective [Unknown]
